FAERS Safety Report 9790815 (Version 1)
Quarter: 2013Q4

REPORT INFORMATION
  Report Type: Report from Study
  Country: US (occurrence: US)
  Receive Date: 20131231
  Receipt Date: 20131231
  Transmission Date: 20140711
  Serious: Yes (Life-Threatening, Hospitalization)
  Sender: FDA-Public Use
  Company Number: US-MYLANLABS-2013S1028801

PATIENT
  Age: 69 Year
  Sex: Male
  Weight: 105.5 kg

DRUGS (11)
  1. DOUBLE BLINDED STUDY MEDICATION [Suspect]
     Indication: PAIN
     Dosage: 6 CAPSULES, TWICE DAILY
     Route: 048
     Dates: start: 20131010, end: 20131107
  2. GLUCOPHAGE [Suspect]
     Indication: DIABETES MELLITUS
     Route: 048
     Dates: start: 2006
  3. GLUCOPHAGE [Suspect]
     Indication: DIABETES MELLITUS
     Route: 048
     Dates: start: 20131107, end: 20131107
  4. LISINOPRIL [Suspect]
     Indication: HYPERTENSION
     Route: 048
     Dates: start: 2006
  5. LISINOPRIL [Suspect]
     Indication: HYPERTENSION
     Route: 048
     Dates: start: 2006
  6. LISINOPRIL [Suspect]
     Indication: HYPERTENSION
     Dosage: 12-15 DOSAGE FORMS
     Route: 048
     Dates: start: 20131107, end: 20131107
  7. ASA [Suspect]
     Indication: PROPHYLAXIS
     Route: 048
     Dates: start: 2012
  8. ASA [Suspect]
     Indication: PROPHYLAXIS
     Dosage: SEVERAL DOSAGE FORMS
     Route: 048
     Dates: start: 20131107, end: 20131107
  9. NAPROXEN [Suspect]
     Dosage: 10-20
     Dates: start: 20131107, end: 20131107
  10. HYDROCHLOROTHIAZIDE [Concomitant]
     Indication: HYPERTENSION
     Dates: start: 2006
  11. LORATADINE [Concomitant]
     Indication: FOOD ALLERGY
     Route: 048
     Dates: start: 1985

REACTIONS (2)
  - Suicide attempt [Recovered/Resolved]
  - Major depression [Not Recovered/Not Resolved]
